FAERS Safety Report 18333664 (Version 1)
Quarter: 2020Q4

REPORT INFORMATION
  Report Type: Spontaneous
  Country: NL (occurrence: NL)
  Receive Date: 20201001
  Receipt Date: 20201001
  Transmission Date: 20210113
  Serious: Yes (Death, Life-Threatening, Hospitalization, Other)
  Sender: FDA-Public Use
  Company Number: NL-MACLEODS PHARMACEUTICALS US LTD-MAC2020028236

PATIENT

DRUGS (1)
  1. METFORMIN [Suspect]
     Active Substance: METFORMIN HYDROCHLORIDE
     Indication: PRODUCT USED FOR UNKNOWN INDICATION
     Dosage: UNK
     Route: 065

REACTIONS (15)
  - Coagulopathy [Unknown]
  - Hepatic steatosis [None]
  - Sepsis [Unknown]
  - Necrosis ischaemic [Fatal]
  - Toxicity to various agents [Unknown]
  - Renal tubular necrosis [Fatal]
  - Septic shock [Unknown]
  - Gastroenteritis salmonella [Unknown]
  - Drug level increased [Recovering/Resolving]
  - Multiple organ dysfunction syndrome [Fatal]
  - Acute kidney injury [Unknown]
  - Hepatic failure [Unknown]
  - Lactic acidosis [Recovering/Resolving]
  - Metabolic acidosis [Unknown]
  - Hypoglycaemia [Unknown]
